FAERS Safety Report 23646882 (Version 1)
Quarter: 2024Q1

REPORT INFORMATION
  Report Type: Spontaneous
  Country: CN (occurrence: CN)
  Receive Date: 20240319
  Receipt Date: 20240319
  Transmission Date: 20240410
  Serious: Yes (Other)
  Sender: FDA-Public Use
  Company Number: CN-JNJFOC-20240283833

PATIENT

DRUGS (2)
  1. IMBRUVICA [Suspect]
     Active Substance: IBRUTINIB
     Indication: Chronic lymphocytic leukaemia
     Route: 048
  2. ZANUBRUTINIB [Suspect]
     Active Substance: ZANUBRUTINIB
     Indication: Thrombocytopenia
     Dosage: FREQUENCY:0.5 DAY
     Route: 065

REACTIONS (9)
  - Colon cancer [Unknown]
  - Anaemia [Unknown]
  - Thrombocytopenia [Unknown]
  - Infection [Unknown]
  - Neutrophil count decreased [Unknown]
  - Bronchial carcinoma [Unknown]
  - Atrial fibrillation [Unknown]
  - Breast cancer [Unknown]
  - Urinary tract neoplasm [Unknown]
